FAERS Safety Report 17400822 (Version 1)
Quarter: 2020Q1

REPORT INFORMATION
  Report Type: Spontaneous
  Country: US (occurrence: US)
  Receive Date: 20200211
  Receipt Date: 20200211
  Transmission Date: 20200409
  Serious: No
  Sender: FDA-Public Use
  Company Number: US-LEADING PHARMA LLC-US-2020LEASPO00001

PATIENT
  Sex: Male

DRUGS (6)
  1. FUROSEMIDE TABLETS USP [Suspect]
     Active Substance: FUROSEMIDE
  2. FUROSEMIDE TABLETS USP [Suspect]
     Active Substance: FUROSEMIDE
  3. METOLAZONE. [Suspect]
     Active Substance: METOLAZONE
  4. POTASSIUM [Concomitant]
     Active Substance: POTASSIUM
  5. SUTENT [Concomitant]
     Active Substance: SUNITINIB MALATE
  6. LEVETIRACETAM. [Concomitant]
     Active Substance: LEVETIRACETAM

REACTIONS (1)
  - Weight fluctuation [Recovered/Resolved]
